FAERS Safety Report 7990271-7 (Version None)
Quarter: 2011Q4

REPORT INFORMATION
  Report Type: 
  Country: None (occurrence: None)
  Receive Date: 20111219
  Receipt Date: 20110201
  Transmission Date: 20120403
  Serious: No
  Sender: FDA-Public Use
  Company Number: US-ASTRAZENECA-2011SE05499

PATIENT
  Age: 63 Year
  Sex: Female
  Weight: 67.1 kg

DRUGS (4)
  1. PRILOSEC [Concomitant]
     Indication: REFLUX LARYNGITIS
  2. CRESTOR [Suspect]
     Indication: HYPERCHOLESTEROLAEMIA
     Route: 048
     Dates: start: 20110122
  3. HYDROCHLOROTHIAZIDE [Concomitant]
     Indication: HYPERTENSION
  4. MINESTAR [Concomitant]
     Indication: OESTROGEN REPLACEMENT THERAPY

REACTIONS (3)
  - ABDOMINAL DISCOMFORT [None]
  - DIZZINESS [None]
  - SENSATION OF FOREIGN BODY [None]
